FAERS Safety Report 24006320 (Version 2)
Quarter: 2024Q3

REPORT INFORMATION
  Report Type: Report from Study
  Country: KR (occurrence: None)
  Receive Date: 20240624
  Receipt Date: 20240705
  Transmission Date: 20241017
  Serious: Yes (Other)
  Sender: ASTRAZENECA
  Company Number: 2024A140981

PATIENT
  Age: 19937 Day
  Sex: Male

DRUGS (1)
  1. TAGRISSO [Suspect]
     Active Substance: OSIMERTINIB
     Indication: Lung carcinoma cell type unspecified stage IV
     Route: 048
     Dates: start: 20240223, end: 202405

REACTIONS (12)
  - Stress fracture [Unknown]
  - Arthralgia [Recovered/Resolved]
  - Erythema [Unknown]
  - Arthropathy [Unknown]
  - Dyspepsia [Unknown]
  - Dysgeusia [Unknown]
  - Weight decreased [Unknown]
  - Frequent bowel movements [Unknown]
  - Flatulence [Unknown]
  - Diarrhoea [Unknown]
  - Hypogeusia [Unknown]
  - Stomatitis [Unknown]

NARRATIVE: CASE EVENT DATE: 20240501
